FAERS Safety Report 13733969 (Version 1)
Quarter: 2017Q3

REPORT INFORMATION
  Report Type: Spontaneous
  Country: FR (occurrence: FR)
  Receive Date: 20170708
  Receipt Date: 20170708
  Transmission Date: 20171127
  Serious: Yes (Congenital Anomaly)
  Sender: FDA-Public Use
  Company Number: FR-009507513-1706FRA009602

PATIENT
  Age: 1 Day
  Sex: Female

DRUGS (12)
  1. SPIRONOLACTONE. [Suspect]
     Active Substance: SPIRONOLACTONE
     Dosage: UNK
     Route: 064
     Dates: end: 20150220
  2. INSULIN [Suspect]
     Active Substance: INSULIN NOS
     Dosage: UNK
     Route: 064
     Dates: start: 20150220, end: 20150818
  3. INEGY [Suspect]
     Active Substance: EZETIMIBE\SIMVASTATIN
     Dosage: UNK
     Route: 064
     Dates: end: 20150220
  4. TRIATEC (RAMIPRIL) [Suspect]
     Active Substance: RAMIPRIL
     Dosage: UNK
     Dates: end: 20150220
  5. APROVEL [Suspect]
     Active Substance: IRBESARTAN
     Dosage: UNK
     Route: 064
     Dates: end: 20150220
  6. NEORAL [Suspect]
     Active Substance: CYCLOSPORINE
     Dosage: 200 MG, BID
     Route: 064
     Dates: start: 20150220, end: 20150818
  7. PRIMPERAN [Suspect]
     Active Substance: METOCLOPRAMIDE HYDROCHLORIDE
     Dosage: 10 MG, TID
     Route: 064
     Dates: start: 20150220, end: 20150818
  8. ASPEGIC [Suspect]
     Active Substance: ASPIRIN DL-LYSINE
     Dosage: 100 MG, QD
     Route: 064
     Dates: end: 20150818
  9. PROZAC [Suspect]
     Active Substance: FLUOXETINE HYDROCHLORIDE
     Dosage: 20 MG, QD
     Route: 064
     Dates: end: 20150818
  10. SODIUM BICARBONATE. [Suspect]
     Active Substance: SODIUM BICARBONATE
     Dosage: 1 G, BID
     Route: 064
     Dates: start: 20150220, end: 20150818
  11. ATARAX [Concomitant]
     Active Substance: HYDROXYZINE HYDROCHLORIDE
     Dosage: UNK
     Route: 064
     Dates: start: 20150220, end: 20150818
  12. ROVAMYCINE [Concomitant]
     Active Substance: SPIRAMYCIN
     Dosage: UNK
     Route: 064
     Dates: start: 20150125, end: 20150818

REACTIONS (3)
  - Talipes [Not Recovered/Not Resolved]
  - Dysmorphism [Not Recovered/Not Resolved]
  - Congenital musculoskeletal anomaly [Not Recovered/Not Resolved]
